FAERS Safety Report 8024243-3 (Version None)
Quarter: 2012Q1

REPORT INFORMATION
  Report Type: 
  Country: None (occurrence: None)
  Receive Date: 20120105
  Receipt Date: 20120103
  Transmission Date: 20120608
  Serious: Yes (Death)
  Sender: FDA-Public Use
  Company Number: PHHY2011MX113661

PATIENT
  Sex: Female

DRUGS (2)
  1. DIOVAN [Suspect]
     Indication: HYPERTENSION
     Dosage: 01 TABLET (320 MG) PER DAY
     Dates: start: 20110815
  2. DIOVAN [Suspect]
     Indication: CARDIAC FAILURE

REACTIONS (3)
  - HYPERTENSION [None]
  - CARDIAC FAILURE [None]
  - ARTERIOSCLEROSIS [None]
